FAERS Safety Report 5529242-9 (Version None)
Quarter: 2007Q4

REPORT INFORMATION
  Report Type: 
  Country: None (occurrence: None)
  Receive Date: 20071129
  Receipt Date: 20070814
  Transmission Date: 20080405
  Serious: No
  Sender: FDA-Public Use
  Company Number: A0670169A

PATIENT
  Age: 74 Year
  Sex: Male

DRUGS (3)
  1. WELLBUTRIN SR [Suspect]
     Indication: CHRONIC FATIGUE SYNDROME
     Dosage: 200MG TWICE PER DAY
     Route: 048
     Dates: start: 20070701
  2. FLOMAX [Concomitant]
  3. HYZAAR [Concomitant]

REACTIONS (1)
  - DYSURIA [None]
